FAERS Safety Report 19780138 (Version 10)
Quarter: 2022Q1

REPORT INFORMATION
  Report Type: Report from Study
  Country: US (occurrence: US)
  Receive Date: 20210902
  Receipt Date: 20220130
  Transmission Date: 20220424
  Serious: Yes (Hospitalization, Other)
  Sender: FDA-Public Use
  Company Number: US-BRISTOL-MYERS SQUIBB COMPANY-BMS-2021-085439

PATIENT
  Age: 69 Year
  Sex: Male
  Weight: 74.8 kg

DRUGS (7)
  1. ABATACEPT [Suspect]
     Active Substance: ABATACEPT
     Indication: COVID-19
     Dosage: 717 MG, SINGLE DOSE
     Route: 042
     Dates: start: 20210809, end: 20210809
  2. REMDESIVIR [Suspect]
     Active Substance: REMDESIVIR
     Indication: COVID-19
     Dosage: 200 MG, ONCE (LOADING DOSE)
     Route: 042
     Dates: start: 20210807, end: 20210807
  3. REMDESIVIR [Suspect]
     Active Substance: REMDESIVIR
     Dosage: 100 MG, ONCE-DAILY (MAINTENANCE DOSE)
     Route: 042
     Dates: start: 20210808, end: 20210816
  4. MYCOPHENOLATE MOFETIL [Suspect]
     Active Substance: MYCOPHENOLATE MOFETIL
     Indication: Product used for unknown indication
     Dosage: UNK
     Route: 065
  5. TACROLIMUS [Suspect]
     Active Substance: TACROLIMUS
     Indication: Product used for unknown indication
     Dosage: UNK
     Route: 065
  6. TOCILIZUMAB [Suspect]
     Active Substance: TOCILIZUMAB
     Indication: Product used for unknown indication
     Dosage: UNK
     Route: 065
     Dates: start: 20210810
  7. UNSPECIFIED INGREDIENT [Concomitant]
     Active Substance: UNSPECIFIED INGREDIENT
     Indication: Product used for unknown indication
     Dosage: UNK
     Route: 065

REACTIONS (1)
  - Opportunistic infection [Recovered/Resolved]

NARRATIVE: CASE EVENT DATE: 20210812
